FAERS Safety Report 6128542-1 (Version None)
Quarter: 2009Q1

REPORT INFORMATION
  Report Type: 
  Country: None (occurrence: None)
  Receive Date: 20090323
  Receipt Date: 20090130
  Transmission Date: 20090719
  Serious: No
  Sender: FDA-Public Use
  Company Number: US-ABBOTT-09P-163-0501307-00

PATIENT
  Sex: Female
  Weight: 41.768 kg

DRUGS (11)
  1. ERY-TAB [Suspect]
     Indication: NEUROPATHY PERIPHERAL
     Dosage: 0.5,  3 DAYS
     Route: 048
     Dates: start: 20081101
  2. PREVACID [Concomitant]
     Indication: GASTRIC DISORDER
     Route: 048
  3. CELEXA [Concomitant]
     Indication: DEPRESSION
     Dosage: 1 IN 2 DAYS
     Route: 048
  4. XANAX [Concomitant]
     Indication: PANIC ATTACK
     Dosage: AS NEEDED
     Route: 048
  5. KLONOPIN [Concomitant]
     Indication: MUSCLE SPASMS
     Dosage: 1 IN 2 DAYS
     Route: 048
  6. KLONOPIN [Concomitant]
     Indication: INFLAMMATORY BOWEL DISEASE
  7. KLONOPIN [Concomitant]
     Indication: PROPHYLAXIS
  8. ASACOL [Concomitant]
     Indication: COLITIS
     Route: 048
  9. PHENERGAN [Concomitant]
     Indication: DIARRHOEA
     Route: 048
  10. PHENERGAN [Concomitant]
     Indication: VOMITING
  11. BENTYL [Concomitant]
     Indication: MUSCLE SPASMS
     Route: 048

REACTIONS (1)
  - VOMITING [None]
